FAERS Safety Report 19912222 (Version 1)
Quarter: 2021Q4

REPORT INFORMATION
  Report Type: Spontaneous
  Country: IT (occurrence: IT)
  Receive Date: 20211004
  Receipt Date: 20211004
  Transmission Date: 20220303
  Serious: Yes (Other)
  Sender: FDA-Public Use
  Company Number: IT-BAYER-2021-124395

PATIENT
  Age: 60 Year
  Sex: Female

DRUGS (1)
  1. CIPROFLOXACIN [Interacting]
     Active Substance: CIPROFLOXACIN
     Indication: Pyrexia
     Dosage: 1000 MILLIGRAM, QD (500 MG, BID)
     Dates: start: 20201025, end: 20201105

REACTIONS (3)
  - Potentiating drug interaction [Unknown]
  - Febrile neutropenia [Unknown]
  - Asthenia [Unknown]
